FAERS Safety Report 5957597-X (Version None)
Quarter: 2008Q4

REPORT INFORMATION
  Report Type: 
  Country: None (occurrence: None)
  Receive Date: 20081117
  Receipt Date: 20081117
  Transmission Date: 20090506
  Serious: Yes (Other)
  Sender: FDA-Public Use
  Company Number: None

PATIENT
  Age: 48 Year
  Sex: Male
  Weight: 59.8748 kg

DRUGS (1)
  1. CITALOPRAM HYDROBROMIDE [Suspect]
     Indication: ANXIETY
     Dosage: 20 MG 1 A DAY ORAL
     Route: 048
     Dates: start: 20080808, end: 20080824

REACTIONS (31)
  - ABDOMINAL PAIN UPPER [None]
  - AGITATION [None]
  - ANOREXIA [None]
  - ANXIETY [None]
  - BACK PAIN [None]
  - BLISTER [None]
  - CONFUSIONAL STATE [None]
  - DIARRHOEA [None]
  - DIZZINESS [None]
  - DRY EYE [None]
  - DRY MOUTH [None]
  - EYE PAIN [None]
  - FEELING ABNORMAL [None]
  - FEELING GUILTY [None]
  - FEELINGS OF WORTHLESSNESS [None]
  - HEADACHE [None]
  - INSOMNIA [None]
  - IRRITABILITY [None]
  - MOTOR DYSFUNCTION [None]
  - MUSCULAR WEAKNESS [None]
  - NEPHROLITHIASIS [None]
  - NERVOUSNESS [None]
  - PANIC ATTACK [None]
  - PARANOIA [None]
  - SEASONAL ALLERGY [None]
  - SINUSITIS [None]
  - THINKING ABNORMAL [None]
  - TINNITUS [None]
  - VERTIGO [None]
  - WEIGHT DECREASED [None]
  - WITHDRAWAL SYNDROME [None]
